FAERS Safety Report 9282593 (Version 1)
Quarter: 2013Q2

REPORT INFORMATION
  Report Type: Spontaneous
  Country: US (occurrence: US)
  Receive Date: 20130510
  Receipt Date: 20130510
  Transmission Date: 20140414
  Serious: Yes (Other)
  Sender: FDA-Public Use
  Company Number: US-PFIZER INC-2013141688

PATIENT
  Sex: Female

DRUGS (1)
  1. VIBRAMYCIN [Suspect]
     Dosage: UNK
     Dates: start: 1985

REACTIONS (4)
  - Apparent death [Unknown]
  - Abasia [Unknown]
  - Respiratory disorder [Unknown]
  - Hypersensitivity [Unknown]
